FAERS Safety Report 18092805 (Version 1)
Quarter: 2020Q3

REPORT INFORMATION
  Report Type: Spontaneous
  Country: US (occurrence: US)
  Receive Date: 20200730
  Receipt Date: 20200730
  Transmission Date: 20201103
  Serious: No
  Sender: FDA-Public Use
  Company Number: None

PATIENT
  Age: 83 Year
  Sex: Female

DRUGS (6)
  1. LETROZOLE. [Concomitant]
     Active Substance: LETROZOLE
  2. RANITIDINE. [Concomitant]
     Active Substance: RANITIDINE
  3. TRICOR [Concomitant]
     Active Substance: FENOFIBRATE
  4. ASPIRIN LOW DOSE [Concomitant]
     Active Substance: ASPIRIN
  5. INDERAL LA [Concomitant]
     Active Substance: PROPRANOLOL HYDROCHLORIDE
  6. IBRANCE [Suspect]
     Active Substance: PALBOCICLIB
     Indication: NEOPLASM MALIGNANT
     Route: 048

REACTIONS (3)
  - Diarrhoea [None]
  - Muscle spasms [None]
  - Product formulation issue [None]

NARRATIVE: CASE EVENT DATE: 20200730
